FAERS Safety Report 23022214 (Version 1)
Quarter: 2023Q4

REPORT INFORMATION
  Report Type: Spontaneous
  Country: US (occurrence: None)
  Receive Date: 20231003
  Receipt Date: 20231003
  Transmission Date: 20240110
  Serious: Yes (Hospitalization)
  Sender: FDA-Public Use
  Company Number: None

PATIENT
  Sex: Male

DRUGS (1)
  1. RINVOQ [Suspect]
     Active Substance: UPADACITINIB
     Indication: Inflammatory bowel disease
     Dosage: FREQUENCY : DAILY;?
     Route: 048
     Dates: start: 202304

REACTIONS (3)
  - Faeces soft [None]
  - Frequent bowel movements [None]
  - Gastroenteritis viral [None]
